FAERS Safety Report 8455078-5 (Version None)
Quarter: 2012Q2

REPORT INFORMATION
  Report Type: 
  Country: None (occurrence: None)
  Receive Date: 20120615
  Receipt Date: 20120615
  Transmission Date: 20120825
  Serious: Yes (Life-Threatening, Hospitalization, Disabling, Other)
  Sender: FDA-Public Use
  Company Number: None

PATIENT
  Age: 39 Year
  Sex: Female
  Weight: 63.5036 kg

DRUGS (2)
  1. LOSARTAN POTASSIUM [Suspect]
     Indication: PROTEIN TOTAL DECREASED
     Dosage: 1X DAY
     Dates: start: 20111117, end: 20120114
  2. LOSARTAN POTASSIUM [Suspect]
     Indication: BLOOD PRESSURE
     Dosage: 1X DAY
     Dates: start: 20111117, end: 20120114

REACTIONS (3)
  - FLUID RETENTION [None]
  - WEIGHT INCREASED [None]
  - RENAL FAILURE [None]
